FAERS Safety Report 9069492 (Version 1)
Quarter: 2013Q1

REPORT INFORMATION
  Report Type: Spontaneous
  Country: US (occurrence: US)
  Receive Date: 20130215
  Receipt Date: 20130215
  Transmission Date: 20140127
  Serious: Yes (Other)
  Sender: FDA-Public Use
  Company Number: US-PFIZER INC-2013056239

PATIENT
  Age: 20 Year
  Sex: Male
  Weight: 85.71 kg

DRUGS (2)
  1. BENEFIX [Suspect]
     Indication: PROPHYLAXIS
     Dosage: 10 IU/KG, EVERY OTHER WEEK OR BI-MONTHLY
  2. BENEFIX [Suspect]
     Indication: FACTOR IX DEFICIENCY

REACTIONS (2)
  - Factor IX inhibition [Unknown]
  - Off label use [Unknown]
